FAERS Safety Report 13148251 (Version 1)
Quarter: 2017Q1

REPORT INFORMATION
  Report Type: Spontaneous
  Country: US (occurrence: US)
  Receive Date: 20170120
  Receipt Date: 20170120
  Transmission Date: 20170428
  Serious: Yes (Other)
  Sender: FDA-Public Use
  Company Number: None

PATIENT
  Age: 50 Year
  Sex: Female
  Weight: 63 kg

DRUGS (8)
  1. CYMPALTA [Concomitant]
  2. KLONIPIN [Concomitant]
     Active Substance: CLONAZEPAM
  3. BELSOMRA [Suspect]
     Active Substance: SUVOREXANT
     Indication: MIDDLE INSOMNIA
     Dosage: ?          QUANTITY:1 TABLET(S);?
     Route: 048
     Dates: start: 20170116, end: 20170118
  4. TEGRETAL [Concomitant]
     Active Substance: CARBAMAZEPINE
  5. THYROID [Concomitant]
     Active Substance: LEVOTHYROXINE\LIOTHYRONINE
  6. IBROPHEN [Concomitant]
  7. NORATRIPALINE [Concomitant]
  8. VITAMIN D [Concomitant]
     Active Substance: CHOLECALCIFEROL

REACTIONS (4)
  - Bipolar disorder [None]
  - Depression [None]
  - Anger [None]
  - Mania [None]

NARRATIVE: CASE EVENT DATE: 20170116
